FAERS Safety Report 5501626-4 (Version None)
Quarter: 2007Q4

REPORT INFORMATION
  Report Type: 
  Country: None (occurrence: None)
  Receive Date: 20071030
  Receipt Date: 20071015
  Transmission Date: 20080405
  Serious: Yes (Disabling)
  Sender: FDA-Public Use
  Company Number: JP-PURDUE-MAG_2007_0000590

PATIENT
  Age: 60 Year
  Sex: Male

DRUGS (8)
  1. OXYCODONE HCL [Suspect]
     Indication: PAIN IN EXTREMITY
     Dosage: 2.5 MG, QID
     Route: 048
     Dates: start: 20070813, end: 20070814
  2. GLYSENNID [Concomitant]
     Indication: CONSTIPATION
     Dosage: 12 MG, DAILY
     Route: 048
     Dates: start: 20060301, end: 20070818
  3. CALTAN [Concomitant]
     Indication: HYPERPARATHYROIDISM SECONDARY
     Dosage: 1500 MG, DAILY
     Route: 048
     Dates: start: 20070813, end: 20070817
  4. LASIX [Concomitant]
     Indication: RENAL FAILURE CHRONIC
     Dosage: 40 MG, DAILY
     Route: 048
     Dates: start: 20070707, end: 20070818
  5. ASPIRIN [Concomitant]
     Indication: CEREBRAL INFARCTION
     Dosage: 100 MG, DAILY
     Route: 048
     Dates: start: 20060303, end: 20070818
  6. ZOLPIDEM [Concomitant]
     Indication: INSOMNIA
     Dosage: 5 MG, DAILY
     Route: 048
     Dates: start: 20060301, end: 20070818
  7. OPALMON [Concomitant]
     Indication: DIABETIC GANGRENE
     Dosage: 30 MCG, DAILY
     Route: 048
     Dates: start: 20070811, end: 20070816
  8. LIPITOR [Concomitant]
     Indication: HYPERLIPIDAEMIA
     Dosage: 5 MG, DAILY
     Route: 048
     Dates: start: 20070807, end: 20070816

REACTIONS (1)
  - LIVER DISORDER [None]
